FAERS Safety Report 10424103 (Version 2)
Quarter: 2014Q4

REPORT INFORMATION
  Report Type: Spontaneous
  Country: US (occurrence: None)
  Receive Date: 20140722
  Receipt Date: 20141020
  Transmission Date: 20150528
  Serious: No
  Sender: FDA-Public Use
  Company Number: AEGR000430

PATIENT
  Age: 45 Year
  Sex: Male
  Weight: 89.8 kg

DRUGS (13)
  1. LAMICTAL [Concomitant]
     Active Substance: LAMOTRIGINE
  2. JUXTAPID [Suspect]
     Active Substance: LOMITAPIDE MESYLATE
     Indication: HYPERCHOLESTEROLAEMIA
     Route: 048
     Dates: start: 201404
  3. LITHIUM [Concomitant]
     Active Substance: LITHIUM CARBONATE
  4. COPAXONE [Concomitant]
     Active Substance: GLATIRAMER ACETATE
  5. CYMBALTA [Concomitant]
     Active Substance: DULOXETINE HYDROCHLORIDE
  6. PLAVIX (CLOPDOGREL BISULFATE) [Concomitant]
  7. ACIPHEX [Concomitant]
     Active Substance: RABEPRAZOLE SODIUM
  8. CRESTOR [Concomitant]
     Active Substance: ROSUVASTATIN CALCIUM
  9. HYDROCODONE (HYDROCODONE BITARTRATE) [Concomitant]
     Active Substance: HYDROCODONE BITARTRATE
  10. METHADONE HCL (METHADONE HYDROCHLORIDE) [Concomitant]
  11. JUXTAPID [Suspect]
     Active Substance: LOMITAPIDE MESYLATE
     Indication: HYPERLIPIDAEMIA
     Route: 048
     Dates: start: 201404
  12. ASPIRIN. [Concomitant]
     Active Substance: ASPIRIN
  13. METOPROLOL [Concomitant]
     Active Substance: METOPROLOL

REACTIONS (8)
  - Fatigue [None]
  - Abdominal discomfort [None]
  - Nausea [None]
  - Off label use [None]
  - Liver function test abnormal [None]
  - Decreased appetite [None]
  - Pain in extremity [None]
  - Abdominal pain upper [None]

NARRATIVE: CASE EVENT DATE: 201404
